FAERS Safety Report 5130100-2 (Version None)
Quarter: 2006Q4

REPORT INFORMATION
  Report Type: 
  Country: None (occurrence: None)
  Receive Date: 20061013
  Receipt Date: 20060922
  Transmission Date: 20070319
  Serious: Yes (Other)
  Sender: FDA-Public Use
  Company Number: CH200609005264

PATIENT
  Age: 33 Year
  Sex: Female

DRUGS (3)
  1. ZYPREXA [Suspect]
     Indication: INSOMNIA
     Dosage: DAILY (1/D), ORAL
     Route: 048
     Dates: end: 20050929
  2. FLUCTINE (FLUOXETINE HYDROCHLORIDE) TABLET [Suspect]
     Indication: DEPRESSION
     Dosage: DAILY (1/D), ORAL
     Route: 048
     Dates: end: 20051026
  3. LITHIUM CARBONATE [Concomitant]

REACTIONS (5)
  - CAESAREAN SECTION [None]
  - DEPRESSION [None]
  - DRUG EXPOSURE BEFORE PREGNANCY [None]
  - DRUG EXPOSURE DURING PREGNANCY [None]
  - INSOMNIA [None]
